FAERS Safety Report 9586309 (Version 3)
Quarter: 2013Q4

REPORT INFORMATION
  Report Type: Spontaneous
  Country: JP (occurrence: JP)
  Receive Date: 20131003
  Receipt Date: 20131014
  Transmission Date: 20140711
  Serious: Yes (Death, Hospitalization)
  Sender: FDA-Public Use
  Company Number: JP-BAYER-2013-114013

PATIENT
  Age: 71 Year
  Sex: Male
  Weight: 47 kg

DRUGS (6)
  1. STIVARGA [Suspect]
     Indication: COLON CANCER
     Dosage: 80 MG, QD
     Route: 048
     Dates: start: 20130910, end: 20130918
  2. SPIRONOLACTONE [Concomitant]
     Dosage: DAILY DOSE 100 MG
     Route: 048
  3. JANUVIA [Concomitant]
     Dosage: 50 MG, QD
     Route: 048
  4. URDENACIN [Concomitant]
     Dosage: DAILY DOSE 300 MG
     Route: 048
  5. MAGMITT [Concomitant]
     Dosage: DAILY DOSE 1500 MG
     Route: 048
  6. FUROSEMIDE [Concomitant]
     Dosage: 40 MG, QD
     Route: 048

REACTIONS (1)
  - Gastrointestinal perforation [Fatal]
